FAERS Safety Report 7609096-7 (Version None)
Quarter: 2011Q3

REPORT INFORMATION
  Report Type: 
  Country: None (occurrence: None)
  Receive Date: 20110714
  Receipt Date: 20110711
  Transmission Date: 20111222
  Serious: Yes (Hospitalization)
  Sender: FDA-Public Use
  Company Number: US-B.I. PHARMACEUTICALS,INC./RIDGEFIELD-2011-BP-17452BP

PATIENT
  Age: 74 Year
  Sex: Female

DRUGS (11)
  1. TIZANIDINE HCL [Concomitant]
     Indication: MUSCLE SPASMS
     Dosage: 4 MG
     Route: 048
     Dates: start: 20080101
  2. METOPROLOL SUCCINATE [Concomitant]
     Indication: ATRIAL FIBRILLATION
     Dosage: 25 MG
     Route: 048
     Dates: start: 20110401
  3. ATENOLOL [Concomitant]
     Indication: ATRIAL FIBRILLATION
     Route: 048
     Dates: end: 20110401
  4. HYDROCODONE BITARTRATE AND ACETAMINOPHEN [Concomitant]
     Indication: MUSCLE SPASMS
     Route: 048
     Dates: start: 20080101
  5. LIPITOR [Concomitant]
     Indication: BLOOD CHOLESTEROL INCREASED
     Dosage: 10 MG
     Route: 048
     Dates: start: 20060101
  6. LASIX [Concomitant]
     Indication: OEDEMA PERIPHERAL
     Dosage: 80 MG
     Route: 048
     Dates: start: 20110601
  7. PRADAXA [Suspect]
     Dosage: 150 MG
     Route: 048
     Dates: start: 20110501, end: 20110702
  8. NEPHROVITE [Concomitant]
     Indication: ROUTINE HEALTH MAINTENANCE
     Route: 048
     Dates: start: 20070101
  9. ENABLEX [Concomitant]
     Indication: BLADDER DISORDER
     Dosage: 7.5 MG
     Route: 048
     Dates: start: 20090101
  10. PRADAXA [Suspect]
     Indication: ATRIAL FIBRILLATION
     Dosage: 300 MG
     Route: 048
     Dates: start: 20110401, end: 20110501
  11. RANITIDINE [Concomitant]
     Indication: GASTRIC ULCER
     Dosage: 150 MG
     Route: 048
     Dates: start: 19900101

REACTIONS (7)
  - ABDOMINAL PAIN [None]
  - ASTHENIA [None]
  - DYSPEPSIA [None]
  - RENAL IMPAIRMENT [None]
  - COUGH [None]
  - NAUSEA [None]
  - PNEUMONIA [None]
